FAERS Safety Report 9420064 (Version 4)
Quarter: 2013Q4

REPORT INFORMATION
  Report Type: Spontaneous
  Country: US (occurrence: US)
  Receive Date: 20130725
  Receipt Date: 20131003
  Transmission Date: 20140711
  Serious: Yes (Other)
  Sender: FDA-Public Use
  Company Number: US-GLAXOSMITHKLINE-A1033731A

PATIENT
  Age: 59 Year
  Sex: Female

DRUGS (5)
  1. ADVAIR [Suspect]
     Indication: CHRONIC OBSTRUCTIVE PULMONARY DISEASE
     Dosage: 1PUFF TWICE PER DAY
     Route: 055
     Dates: start: 201208, end: 201307
  2. VENTOLIN HFA [Concomitant]
  3. XANAX [Concomitant]
  4. PROTONIX [Concomitant]
  5. NEXIUM [Concomitant]

REACTIONS (9)
  - Oesophageal candidiasis [Unknown]
  - Hypoaesthesia [Recovering/Resolving]
  - Ear discomfort [Recovering/Resolving]
  - Hypoacusis [Recovering/Resolving]
  - Sinusitis [Recovered/Resolved]
  - Ear infection [Recovered/Resolved]
  - Productive cough [Not Recovered/Not Resolved]
  - Dysphonia [Not Recovered/Not Resolved]
  - Drug administration error [Unknown]
